FAERS Safety Report 25609697 (Version 1)
Quarter: 2025Q3

REPORT INFORMATION
  Report Type: Spontaneous
  Country: EG (occurrence: EG)
  Receive Date: 20250728
  Receipt Date: 20250728
  Transmission Date: 20251021
  Serious: Yes (Other)
  Sender: GLAXOSMITHKLINE
  Company Number: EG-GSK-EG2025EME090482

PATIENT
  Age: 50 Year

DRUGS (3)
  1. LAMICTAL [Suspect]
     Active Substance: LAMOTRIGINE
     Indication: Epilepsy
     Dosage: 2 DF, QD
  2. VALPROATE SODIUM [Concomitant]
     Active Substance: VALPROATE SODIUM
     Indication: Epilepsy
     Dosage: UNK, BID, 500 CHRONO
  3. OLAPEX [Concomitant]
     Indication: Epilepsy
     Dosage: 0.5 DF, BID

REACTIONS (2)
  - Erectile dysfunction [Unknown]
  - Premature ejaculation [Unknown]
